FAERS Safety Report 6263818-9 (Version None)
Quarter: 2009Q3

REPORT INFORMATION
  Report Type: 
  Country: None (occurrence: None)
  Receive Date: 20090707
  Receipt Date: 20090707
  Transmission Date: 20100115
  Serious: No
  Sender: FDA-Public Use
  Company Number: None

PATIENT
  Age: 52 Year
  Sex: Female
  Weight: 74.8435 kg

DRUGS (1)
  1. ZICAM [Suspect]
     Indication: NASOPHARYNGITIS
     Dosage: 1 SQUIRT EVERY 12 HOURS NASAL
     Route: 045
     Dates: start: 20050209, end: 20050216

REACTIONS (1)
  - ANOSMIA [None]
